FAERS Safety Report 20141622 (Version 2)
Quarter: 2021Q4

REPORT INFORMATION
  Report Type: Spontaneous
  Country: GR (occurrence: GR)
  Receive Date: 20211202
  Receipt Date: 20211228
  Transmission Date: 20220303
  Serious: Yes (Other)
  Sender: FDA-Public Use
  Company Number: GR-Gedeon Richter Plc.-2021_GR_007888

PATIENT
  Age: 47 Year
  Sex: Female
  Weight: 55 kg

DRUGS (7)
  1. FENTANYL [Suspect]
     Active Substance: FENTANYL
     Indication: Spinal anaesthesia
     Dosage: 15 MICROGRAM
  2. ROPIVACAINE [Suspect]
     Active Substance: ROPIVACAINE
     Indication: Spinal anaesthesia
     Dosage: 0.75 PERCENT, 0. 75%
  3. METHYLDOPA [Suspect]
     Active Substance: METHYLDOPA
     Indication: Pre-eclampsia
     Dosage: 250 MILLIGRAM
  4. METHYLDOPA [Suspect]
     Active Substance: METHYLDOPA
     Indication: Proteinuria
  5. PROGESTERONE [Suspect]
     Active Substance: PROGESTERONE
     Indication: Product used for unknown indication
     Dosage: UNK
  6. ASPIRIN [Suspect]
     Active Substance: ASPIRIN
     Indication: Proteinuria
     Dosage: 100 MILLIGRAM
  7. ASPIRIN [Suspect]
     Active Substance: ASPIRIN
     Indication: Pre-eclampsia

REACTIONS (4)
  - Uterine haemorrhage [Unknown]
  - Contraindicated product administered [Unknown]
  - Maternal exposure during delivery [Recovered/Resolved]
  - Off label use [Unknown]
